FAERS Safety Report 8142717-1 (Version None)
Quarter: 2012Q1

REPORT INFORMATION
  Report Type: 
  Country: None (occurrence: None)
  Receive Date: 20120216
  Receipt Date: 20120208
  Transmission Date: 20120608
  Serious: Yes (Hospitalization)
  Sender: FDA-Public Use
  Company Number: CA-BAXTER-2012BH004043

PATIENT
  Sex: Female
  Weight: 85 kg

DRUGS (3)
  1. DIANEAL PD-1 [Suspect]
     Indication: PERITONEAL DIALYSIS
     Route: 033
  2. DIANEAL [Suspect]
     Indication: PERITONEAL DIALYSIS
     Route: 033
  3. EXTRANEAL [Suspect]
     Indication: PERITONEAL DIALYSIS
     Route: 033

REACTIONS (6)
  - BEDRIDDEN [None]
  - CONSTIPATION [None]
  - DECREASED APPETITE [None]
  - NEOPLASM MALIGNANT [None]
  - ABDOMINAL DISTENSION [None]
  - DYSPNOEA [None]
